FAERS Safety Report 14030221 (Version 12)
Quarter: 2018Q2

REPORT INFORMATION
  Report Type: Spontaneous
  Country: US (occurrence: US)
  Receive Date: 20171002
  Receipt Date: 20180604
  Transmission Date: 20180711
  Serious: No
  Sender: FDA-Public Use
  Company Number: US-ACTELION-A-NJ2017-160275

PATIENT
  Age: 39 Year
  Sex: Male
  Weight: 94.79 kg

DRUGS (7)
  1. SILDENAFIL CITRATE. [Concomitant]
     Active Substance: SILDENAFIL CITRATE
  2. XARELTO [Concomitant]
     Active Substance: RIVAROXABAN
  3. VELETRI [Suspect]
     Active Substance: EPOPROSTENOL
     Indication: PULMONARY ARTERIAL HYPERTENSION
     Dosage: 3 NG/KG, PER MIN
     Route: 042
  4. VELETRI [Suspect]
     Active Substance: EPOPROSTENOL
     Dosage: 13 NG/KG, PER MIN
     Route: 042
  5. LETAIRIS [Concomitant]
     Active Substance: AMBRISENTAN
  6. VELETRI [Suspect]
     Active Substance: EPOPROSTENOL
     Dosage: 9 NG/KG, PER MIN
     Route: 042
  7. VELETRI [Suspect]
     Active Substance: EPOPROSTENOL
     Dosage: 12 NG/KG, PER MIN
     Route: 042

REACTIONS (20)
  - Condition aggravated [Unknown]
  - Nasal congestion [Unknown]
  - Skin disorder [Unknown]
  - Nephrolithiasis [Unknown]
  - Photosensitivity reaction [Unknown]
  - Application site pruritus [Unknown]
  - Catheter site erythema [Unknown]
  - Catheter site pruritus [Unknown]
  - Dry skin [Unknown]
  - Gastrooesophageal reflux disease [Unknown]
  - Vomiting [Unknown]
  - Catheter site haemorrhage [Unknown]
  - Arthralgia [Unknown]
  - Migraine [Unknown]
  - Diarrhoea [Unknown]
  - Pain in extremity [Unknown]
  - Myalgia [Unknown]
  - Pain [Unknown]
  - Insomnia [Unknown]
  - Headache [Unknown]
